FAERS Safety Report 7345660-0 (Version None)
Quarter: 2011Q1

REPORT INFORMATION
  Report Type: 
  Country: None (occurrence: None)
  Receive Date: 20110310
  Receipt Date: 20110304
  Transmission Date: 20110831
  Serious: Yes (Hospitalization)
  Sender: FDA-Public Use
  Company Number: B0700166A

PATIENT
  Age: 50 Year
  Sex: Male
  Weight: 127.3 kg

DRUGS (9)
  1. PRILOSEC [Concomitant]
  2. ATENOLOL [Concomitant]
  3. GLIPIZIDE [Concomitant]
  4. ZETIA [Concomitant]
  5. COZAAR [Concomitant]
  6. ZANTAC [Concomitant]
  7. SULAR [Concomitant]
  8. METFORMIN [Concomitant]
  9. AVANDIA [Suspect]
     Indication: DIABETES MELLITUS
     Dosage: 8MG PER DAY
     Route: 048
     Dates: start: 20020101, end: 20061201

REACTIONS (4)
  - CARDIAC DISORDER [None]
  - RENAL FAILURE [None]
  - HYPOTENSION [None]
  - ANGINA UNSTABLE [None]
